FAERS Safety Report 4941210-4 (Version None)
Quarter: 2006Q1

REPORT INFORMATION
  Report Type: 
  Country: None (occurrence: None)
  Receive Date: 20060313
  Receipt Date: 20060302
  Transmission Date: 20060701
  Serious: Yes (Other)
  Sender: FDA-Public Use
  Company Number: 2006UW03519

PATIENT
  Age: 51 Year
  Sex: Male
  Weight: 79.4 kg

DRUGS (5)
  1. NEXIUM [Suspect]
     Indication: GASTRIC ULCER
     Route: 048
     Dates: start: 20050801, end: 20051201
  2. NEXIUM [Suspect]
     Route: 048
     Dates: start: 20051201, end: 20051201
  3. NEXIUM [Suspect]
     Route: 048
     Dates: start: 20050101, end: 20060201
  4. NEXIUM [Suspect]
     Route: 048
     Dates: start: 20060201
  5. ADVAIR DISKUS 100/50 [Concomitant]

REACTIONS (6)
  - BURNING SENSATION [None]
  - CONDITION AGGRAVATED [None]
  - GALLBLADDER DISORDER [None]
  - GASTROOESOPHAGEAL REFLUX DISEASE [None]
  - PRURITUS [None]
  - URTICARIA [None]
